FAERS Safety Report 7605390-4 (Version None)
Quarter: 2011Q3

REPORT INFORMATION
  Report Type: 
  Country: None (occurrence: None)
  Receive Date: 20110705
  Receipt Date: 20110616
  Transmission Date: 20111222
  Serious: Yes (Other)
  Sender: FDA-Public Use
  Company Number: TCI2011A03593

PATIENT
  Age: 64 Year
  Sex: Male

DRUGS (2)
  1. ACTOS [Suspect]
     Dosage: PER ORAL
     Route: 048
     Dates: start: 20060101
  2. INSULIN HUMAN [Concomitant]

REACTIONS (1)
  - BLADDER CANCER [None]
